FAERS Safety Report 23369299 (Version 1)
Quarter: 2024Q1

REPORT INFORMATION
  Report Type: Report from Study
  Country: CH (occurrence: CH)
  Receive Date: 20240105
  Receipt Date: 20240105
  Transmission Date: 20240409
  Serious: Yes (Hospitalization)
  Sender: FDA-Public Use
  Company Number: None

PATIENT
  Age: 73 Year

DRUGS (5)
  1. IBUPROFEN [Suspect]
     Active Substance: IBUPROFEN
     Indication: Back pain
     Route: 065
     Dates: start: 20230422
  2. PAROXETINE HYDROCHLORIDE [Suspect]
     Active Substance: PAROXETINE HYDROCHLORIDE\PAROXETINE HYDROCHLORIDE ANHYDROUS
     Indication: Depressed mood
     Route: 065
  3. BETAHISTINE [Concomitant]
     Active Substance: BETAHISTINE
  4. DICLOFENAC SODIUM [Suspect]
     Active Substance: DICLOFENAC\DICLOFENAC SODIUM
     Indication: Back pain
     Route: 065
     Dates: start: 20230422
  5. NEBIVOLOL [Concomitant]
     Active Substance: NEBIVOLOL

REACTIONS (4)
  - Iron deficiency anaemia [Recovering/Resolving]
  - Upper gastrointestinal haemorrhage [Recovering/Resolving]
  - Drug interaction [Recovering/Resolving]
  - Gastric ulcer [Recovering/Resolving]

NARRATIVE: CASE EVENT DATE: 20230622
